FAERS Safety Report 8834342 (Version 1)
Quarter: 2012Q4

REPORT INFORMATION
  Report Type: 
  Country: NO (occurrence: NO)
  Receive Date: 20121010
  Receipt Date: 20121010
  Transmission Date: 20130627
  Serious: Yes (Other)
  Sender: FDA-Public Use
  Company Number: PHHY2012NO087904

PATIENT
  Sex: Female

DRUGS (2)
  1. CARBAMAZEPINE [Suspect]
  2. CHLORPROMAZINE [Suspect]

REACTIONS (17)
  - Autonomic neuropathy [Recovered/Resolved]
  - Cognitive disorder [Recovered/Resolved]
  - Urinary incontinence [Recovered/Resolved]
  - Delusion [Recovered/Resolved]
  - Convulsion [Recovered/Resolved]
  - Anger [Recovered/Resolved]
  - Intentional self-injury [Recovered/Resolved]
  - Inappropriate affect [Recovered/Resolved]
  - Dyspraxia [Recovered/Resolved]
  - Mutism [Recovered/Resolved]
  - Insomnia [Recovered/Resolved]
  - Dystonia [Recovered/Resolved]
  - Catatonia [Recovered/Resolved]
  - Mydriasis [Recovered/Resolved]
  - Tachycardia [Recovered/Resolved]
  - Dysphagia [Recovered/Resolved]
  - Condition aggravated [Recovered/Resolved]
